FAERS Safety Report 26156905 (Version 1)
Quarter: 2025Q4

REPORT INFORMATION
  Report Type: Spontaneous
  Country: US (occurrence: None)
  Receive Date: 20251212
  Receipt Date: 20251212
  Transmission Date: 20260117
  Serious: Yes (unspecified)
  Sender: FDA-CTU
  Company Number: None

PATIENT
  Age: 55 Year
  Sex: Female
  Weight: 153 kg

DRUGS (1)
  1. CEFTRIAXONE [Suspect]
     Active Substance: CEFTRIAXONE
     Indication: Hypersensitivity
     Dosage: OTHER FREQUENCY : ONCE;
     Route: 040
     Dates: start: 20251210

REACTIONS (5)
  - Hypoxia [None]
  - Hyperhidrosis [None]
  - Hypotension [None]
  - Hyporesponsive to stimuli [None]
  - Anaphylactic reaction [None]

NARRATIVE: CASE EVENT DATE: 20251210
